FAERS Safety Report 16878836 (Version 2)
Quarter: 2019Q4

REPORT INFORMATION
  Report Type: Spontaneous
  Country: US (occurrence: US)
  Receive Date: 20191002
  Receipt Date: 20191127
  Transmission Date: 20200122
  Serious: No
  Sender: FDA-Public Use
  Company Number: US-TAKEDA-2019TUS054928

PATIENT
  Age: 25 Year
  Sex: Female

DRUGS (1)
  1. ENTYVIO [Suspect]
     Active Substance: VEDOLIZUMAB
     Indication: PRODUCT USED FOR UNKNOWN INDICATION
     Dosage: 300 MILLIGRAM
     Route: 042

REACTIONS (4)
  - Headache [Unknown]
  - Arthralgia [Unknown]
  - Adverse drug reaction [Not Recovered/Not Resolved]
  - Fatigue [Unknown]

NARRATIVE: CASE EVENT DATE: 20191024
